FAERS Safety Report 6790927-8 (Version None)
Quarter: 2010Q2

REPORT INFORMATION
  Report Type: 
  Country: None (occurrence: None)
  Receive Date: 20100624
  Receipt Date: 20100613
  Transmission Date: 20101027
  Serious: Yes (Death)
  Sender: FDA-Public Use
  Company Number: IN-BAXTER-2010BH016114

PATIENT
  Age: 50 Year
  Sex: Female

DRUGS (2)
  1. DIANEAL [Suspect]
     Indication: PERITONEAL DIALYSIS
     Route: 033
     Dates: start: 20100501, end: 20100601
  2. DIANEAL [Suspect]
     Route: 033
     Dates: start: 20100501, end: 20100601

REACTIONS (2)
  - CARDIAC ARREST [None]
  - SEPSIS [None]
